FAERS Safety Report 21676120 (Version 1)
Quarter: 2022Q4

REPORT INFORMATION
  Report Type: Report from Study
  Country: US (occurrence: US)
  Receive Date: 20221202
  Receipt Date: 20221202
  Transmission Date: 20230113
  Serious: No
  Sender: FDA-Public Use
  Company Number: US-002147023-NVSC2022US278105

PATIENT
  Sex: Male

DRUGS (2)
  1. COSENTYX [Suspect]
     Active Substance: SECUKINUMAB
     Indication: Ankylosing spondylitis
     Dosage: 150 MG (LOADING DOSE)
     Route: 065
     Dates: start: 202205
  2. COSENTYX [Suspect]
     Active Substance: SECUKINUMAB
     Dosage: 300 MG, OTHER  (ONCE A WEEK FOR 5 WEEKS AND THEN Q 4 WEEKS)
     Route: 058

REACTIONS (7)
  - COVID-19 [Recovering/Resolving]
  - Pain in extremity [Recovering/Resolving]
  - Illness [Recovering/Resolving]
  - Influenza [Recovering/Resolving]
  - Feeling abnormal [Recovering/Resolving]
  - Injection site bruising [Recovering/Resolving]
  - Nasopharyngitis [Recovering/Resolving]
